FAERS Safety Report 9851082 (Version 1)
Quarter: 2014Q1

REPORT INFORMATION
  Report Type: Spontaneous
  Country: CA (occurrence: CA)
  Receive Date: 20140128
  Receipt Date: 20140128
  Transmission Date: 20141002
  Serious: Yes (Other)
  Sender: FDA-Public Use
  Company Number: CA-B.I. PHARMACEUTICALS,INC./RIDGEFIELD-2014-BI-03236CN

PATIENT
  Age: 69 Year
  Sex: Female

DRUGS (5)
  1. SPIRIVA [Suspect]
     Route: 065
  2. SYMBICORT TURBUHALER [Suspect]
     Dosage: 4 ANZ
     Route: 055
  3. STEROIDS [Concomitant]
     Route: 048
  4. TEMAZEPAM [Concomitant]
     Route: 065
  5. TRIAZIDE [Concomitant]
     Route: 065

REACTIONS (3)
  - Cataract [Recovered/Resolved]
  - Condition aggravated [Recovered/Resolved]
  - Photopsia [Recovered/Resolved]
